FAERS Safety Report 9007525 (Version 1)
Quarter: 2013Q1

REPORT INFORMATION
  Report Type: Spontaneous
  Country: US (occurrence: US)
  Receive Date: 20130111
  Receipt Date: 20130111
  Transmission Date: 20140127
  Serious: Yes (Other)
  Sender: FDA-Public Use
  Company Number: US-009507513-0902USA00811

PATIENT
  Sex: Female
  Weight: 68.95 kg

DRUGS (3)
  1. SINGULAIR [Suspect]
     Dosage: 10 MG, QD
     Route: 048
     Dates: start: 20080728, end: 20080729
  2. XYZAL [Suspect]
     Indication: SINUS DISORDER
     Dosage: 2.5 MG, QD
     Route: 048
     Dates: start: 20080728, end: 20080730
  3. XYZAL [Suspect]
     Indication: HYPERSENSITIVITY

REACTIONS (4)
  - Diplopia [Unknown]
  - Eye movement disorder [Unknown]
  - Impaired driving ability [Unknown]
  - Somnolence [Unknown]
